FAERS Safety Report 24079426 (Version 7)
Quarter: 2025Q1

REPORT INFORMATION
  Report Type: Spontaneous
  Country: US (occurrence: US)
  Receive Date: 20240711
  Receipt Date: 20250130
  Transmission Date: 20250409
  Serious: No
  Sender: PFIZER
  Company Number: US-PFIZER INC-202400208472

PATIENT
  Age: 14 Year
  Sex: Male
  Weight: 44.45 kg

DRUGS (2)
  1. GENOTROPIN [Suspect]
     Active Substance: SOMATROPIN
     Indication: Growth hormone deficiency
     Dosage: 2.4 MG, ALTERNATE DAY (2.4MG ONE NIGHT AND 2.6MG THE NEXT NIGHT AND IT ALTERS) 6 DAYS/WEEK
     Dates: start: 2012
  2. GENOTROPIN [Suspect]
     Active Substance: SOMATROPIN
     Indication: Hypopituitarism
     Dosage: 2.6 MG, ALTERNATE DAY (2.4MG ONE NIGHT AND 2.6MG THE NEXT NIGHT AND IT ALTERS)  6 DAYS/WEEK
     Dates: start: 2012

REACTIONS (4)
  - Drug dose omission by device [Unknown]
  - Device use error [Unknown]
  - Device breakage [Unknown]
  - Device issue [Unknown]

NARRATIVE: CASE EVENT DATE: 20240704
